FAERS Safety Report 4944366-2 (Version None)
Quarter: 2006Q1

REPORT INFORMATION
  Report Type: 
  Country: None (occurrence: None)
  Receive Date: 20060315
  Receipt Date: 20051104
  Transmission Date: 20060701
  Serious: Yes (Hospitalization, Disabling)
  Sender: FDA-Public Use
  Company Number: US-MERCK-0511USA01065

PATIENT
  Age: 63 Year
  Sex: Female
  Weight: 109 kg

DRUGS (12)
  1. VIOXX [Suspect]
     Indication: ARTHRALGIA
     Route: 048
     Dates: start: 20000901, end: 20011101
  2. VIOXX [Suspect]
     Route: 048
     Dates: start: 20000901, end: 20011101
  3. COZAAR [Concomitant]
     Indication: HYPERTENSION
     Route: 048
     Dates: start: 20000619
  4. LOPRESSOR [Concomitant]
     Indication: HYPERTENSION
     Route: 065
     Dates: start: 19900101, end: 20050101
  5. LIPITOR [Concomitant]
     Indication: BLOOD CHOLESTEROL INCREASED
     Route: 065
     Dates: start: 20000406, end: 20050101
  6. PRAVACHOL [Concomitant]
     Indication: BLOOD CHOLESTEROL INCREASED
     Route: 065
     Dates: start: 20000406, end: 20050101
  7. AVANDIA [Concomitant]
     Indication: DIABETES MELLITUS
     Route: 065
  8. GLYBURIDE [Concomitant]
     Indication: DIABETES MELLITUS
     Route: 065
  9. FLOVENT [Concomitant]
     Route: 065
  10. ALBUTEROL [Concomitant]
     Route: 065
  11. DIPHENHYDRAMINE HYDROCHLORIDE [Concomitant]
     Indication: HYPERSENSITIVITY
     Route: 065
  12. LORATADINE [Concomitant]
     Indication: HYPERSENSITIVITY
     Route: 065

REACTIONS (9)
  - CONDITION AGGRAVATED [None]
  - DEPRESSION [None]
  - DYSPNOEA [None]
  - GLAUCOMA [None]
  - HYPERSENSITIVITY [None]
  - MYOCARDIAL INFARCTION [None]
  - OEDEMA PERIPHERAL [None]
  - OSTEOARTHRITIS [None]
  - PANIC ATTACK [None]
